FAERS Safety Report 8480351-4 (Version None)
Quarter: 2012Q3

REPORT INFORMATION
  Report Type: 
  Country: None (occurrence: None)
  Receive Date: 20120701
  Receipt Date: 20120523
  Transmission Date: 20120928
  Serious: Yes (Hospitalization)
  Sender: FDA-Public Use
  Company Number: ES-ELI_LILLY_AND_COMPANY-ES201206008603

PATIENT
  Sex: Female

DRUGS (1)
  1. OLANZAPINE [Suspect]
     Dosage: UNK, 2/M
     Route: 030

REACTIONS (1)
  - SCHIZOPHRENIA [None]
